FAERS Safety Report 9778994 (Version 1)
Quarter: 2013Q4

REPORT INFORMATION
  Report Type: Spontaneous
  Country: CN (occurrence: CN)
  Receive Date: 20131223
  Receipt Date: 20131223
  Transmission Date: 20140711
  Serious: Yes (Other)
  Sender: FDA-Public Use
  Company Number: CN-BAYER-2013-151954

PATIENT
  Sex: 0

DRUGS (1)
  1. AVELOX [Suspect]
     Indication: URINARY TRACT INFECTION
     Dosage: 1 DF, ONCE
     Route: 048

REACTIONS (3)
  - Distributive shock [Recovered/Resolved]
  - Shock [Recovered/Resolved]
  - Off label use [None]
